FAERS Safety Report 6348888-1 (Version None)
Quarter: 2009Q3

REPORT INFORMATION
  Report Type: 
  Country: None (occurrence: None)
  Receive Date: 20090911
  Receipt Date: 20090903
  Transmission Date: 20100115
  Serious: Yes (Life-Threatening, Hospitalization, Other)
  Sender: FDA-Public Use
  Company Number: IS-ABBOTT-09P-077-0595316-00

PATIENT
  Sex: Female

DRUGS (1)
  1. HUMIRA [Suspect]
     Indication: CROHN'S DISEASE
     Route: 058

REACTIONS (4)
  - ABSCESS INTESTINAL [None]
  - OESOPHAGEAL CANDIDIASIS [None]
  - PNEUMONIA [None]
  - VASCULITIS [None]
